FAERS Safety Report 10152539 (Version 1)
Quarter: 2014Q2

REPORT INFORMATION
  Report Type: Spontaneous
  Country: US (occurrence: None)
  Receive Date: 20140502
  Receipt Date: 20140502
  Transmission Date: 20141212
  Serious: Yes (Life-Threatening, Hospitalization, Disabling, Other)
  Sender: FDA-Public Use
  Company Number: None

PATIENT
  Age: 56 Year
  Sex: Female

DRUGS (7)
  1. LYRICA [Suspect]
     Indication: MIGRAINE
     Dates: start: 20131009, end: 20131020
  2. TRILEPTAL [Concomitant]
  3. COQ 10 [Concomitant]
  4. FISH OIL [Concomitant]
  5. VITAMIN D3 [Concomitant]
  6. B2 [Concomitant]
  7. CALCIUM(+MAGENSIUM) [Concomitant]

REACTIONS (11)
  - Angioedema [None]
  - Cognitive disorder [None]
  - Headache [None]
  - Crying [None]
  - Confusional state [None]
  - Pain [None]
  - Fatigue [None]
  - Depression suicidal [None]
  - Hypoaesthesia [None]
  - Dysphagia [None]
  - Feeling of despair [None]
